FAERS Safety Report 4286707-8 (Version None)
Quarter: 2004Q1

REPORT INFORMATION
  Report Type: 
  Country: None (occurrence: None)
  Receive Date: 20040204
  Receipt Date: 20040129
  Transmission Date: 20041129
  Serious: Yes (Hospitalization)
  Sender: FDA-Public Use
  Company Number: 200410336GDS

PATIENT
  Age: 82 Year
  Sex: Male

DRUGS (6)
  1. AVELOX [Suspect]
     Indication: CHRONIC OBSTRUCTIVE AIRWAYS DISEASE
     Dosage: 400 MG, TOTAL DAILY, ORAL
     Route: 048
     Dates: start: 20031216, end: 20031223
  2. TATIG [Concomitant]
  3. OXIVENT [Concomitant]
  4. LOSEC I.V. [Concomitant]
  5. CLENIL-A [Concomitant]
  6. BREVA [Concomitant]

REACTIONS (8)
  - ASTHMA [None]
  - CYANOSIS [None]
  - DYSPNOEA [None]
  - ERYTHEMA [None]
  - HYPERHIDROSIS [None]
  - HYPOTENSION [None]
  - PROSTRATION [None]
  - PRURITUS [None]
